FAERS Safety Report 14298301 (Version 1)
Quarter: 2017Q4

REPORT INFORMATION
  Report Type: Spontaneous
  Country: US (occurrence: US)
  Receive Date: 20171215
  Receipt Date: 20171215
  Transmission Date: 20180321
  Serious: Yes (Disabling)
  Sender: FDA-Public Use
  Company Number: None

PATIENT
  Sex: Female
  Weight: 58.5 kg

DRUGS (13)
  1. ASMANEX [Concomitant]
     Active Substance: MOMETASONE FUROATE
  2. NAPROXEN. [Concomitant]
     Active Substance: NAPROXEN
  3. TYLENOL [Concomitant]
     Active Substance: ACETAMINOPHEN
  4. SUMATRIPTIN [Concomitant]
  5. REFRESH EYE DROPS [Concomitant]
  6. BUPROPION XL 150MG [Suspect]
     Active Substance: BUPROPION
     Indication: DEPRESSION
     Dosage: ?          QUANTITY:3 TABLET(S);?
     Route: 048
     Dates: start: 20170811, end: 20171006
  7. VITAMIN D [Concomitant]
     Active Substance: CHOLECALCIFEROL
  8. MELATONIN [Concomitant]
     Active Substance: MELATONIN
  9. PROTONIX [Concomitant]
     Active Substance: PANTOPRAZOLE SODIUM
  10. CALCIUM [Concomitant]
     Active Substance: CALCIUM
  11. PROAIR HFA [Concomitant]
     Active Substance: ALBUTEROL SULFATE
  12. MULTIVITAMIN [Concomitant]
     Active Substance: VITAMINS
  13. OMEGA 3 [Concomitant]
     Active Substance: OMEGA-3 FATTY ACIDS

REACTIONS (7)
  - Nausea [None]
  - Disturbance in attention [None]
  - Headache [None]
  - Loss of personal independence in daily activities [None]
  - Abdominal discomfort [None]
  - Migraine [None]
  - Abdominal pain upper [None]

NARRATIVE: CASE EVENT DATE: 20171011
